FAERS Safety Report 6327098-8 (Version None)
Quarter: 2009Q3

REPORT INFORMATION
  Report Type: 
  Country: None (occurrence: None)
  Receive Date: 20090825
  Receipt Date: 20090817
  Transmission Date: 20100115
  Serious: Yes (Death, Hospitalization)
  Sender: FDA-Public Use
  Company Number: A0783876A

PATIENT
  Age: 50 Year
  Sex: Female

DRUGS (5)
  1. ADVAIR HFA [Suspect]
     Indication: DRUG USE FOR UNKNOWN INDICATION
     Route: 055
  2. SEREVENT [Suspect]
     Indication: DRUG USE FOR UNKNOWN INDICATION
     Route: 055
  3. SPIRIVA [Concomitant]
  4. TRIAMCINOLONE [Concomitant]
  5. ALBUTEROL [Concomitant]

REACTIONS (3)
  - BRONCHOSPASM [None]
  - LUNG DISORDER [None]
  - RESPIRATORY FAILURE [None]
